FAERS Safety Report 9132702 (Version 3)
Quarter: 2013Q1

REPORT INFORMATION
  Report Type: Spontaneous
  Country: US (occurrence: US)
  Receive Date: 20130301
  Receipt Date: 20130313
  Transmission Date: 20140127
  Serious: Yes (Other)
  Sender: FDA-Public Use
  Company Number: US-PFIZER INC-2013069356

PATIENT
  Age: 50 Year
  Sex: Female
  Weight: 91.2 kg

DRUGS (5)
  1. GEODON [Suspect]
     Indication: BIPOLAR DISORDER
     Dosage: 80 MG, 2X/DAY
  2. GEODON [Suspect]
     Indication: SCHIZOAFFECTIVE DISORDER
     Dosage: UNK
  3. GEODON [Suspect]
     Dosage: 60 MG, UNK
  4. FLUOXETINE HYDROCHLORIDE [Concomitant]
     Indication: DEPRESSION
     Dosage: 20 MG, 3X/DAY
  5. TRAZODONE [Concomitant]
     Indication: SLEEP DISORDER
     Dosage: 100 MG, 1X/DAY

REACTIONS (7)
  - Drug dependence [Unknown]
  - Homicidal ideation [Unknown]
  - Self-injurious ideation [Unknown]
  - Violence-related symptom [Unknown]
  - Bronchitis [Unknown]
  - Intentional drug misuse [Unknown]
  - Suicidal ideation [Unknown]
